FAERS Safety Report 25997248 (Version 1)
Quarter: 2025Q4

REPORT INFORMATION
  Report Type: Report from Study
  Country: US (occurrence: US)
  Receive Date: 20251104
  Receipt Date: 20251104
  Transmission Date: 20260118
  Serious: Yes (Hospitalization, Other)
  Sender: PFIZER
  Company Number: US-PFIZER INC-PV202500101267

PATIENT
  Age: 64 Year
  Sex: Female

DRUGS (4)
  1. IBRANCE [Suspect]
     Active Substance: PALBOCICLIB
     Indication: Breast cancer metastatic
     Dosage: 125 MG, CYCLIC (TAKE 1 CAPSULE BY MOUTH 1 TIME A DAY FOR 21 DAYS ON 7 DAYS OFF)
     Route: 048
     Dates: start: 20250729, end: 202508
  2. IBRANCE [Suspect]
     Active Substance: PALBOCICLIB
     Dosage: 125 MG CAPSULE TAKE 1 CAPSULE BY MOUTH 1 TIME A DAY FOR 21 DAYS ON 7 DAYS OFF
     Route: 048
  3. ANASTROZOLE [Concomitant]
     Active Substance: ANASTROZOLE
     Dosage: UNK, DAILY
     Dates: start: 20250729
  4. ANASTROZOLE [Concomitant]
     Active Substance: ANASTROZOLE
     Dosage: UNK, DAILY
     Dates: start: 20251027

REACTIONS (5)
  - Diarrhoea [Not Recovered/Not Resolved]
  - Blood electrolytes decreased [Unknown]
  - Metastases to bone [Unknown]
  - Back pain [Recovering/Resolving]
  - Alopecia [Unknown]

NARRATIVE: CASE EVENT DATE: 20250101
